FAERS Safety Report 12850584 (Version 2)
Quarter: 2016Q4

REPORT INFORMATION
  Report Type: Report from Study
  Country: IT (occurrence: IT)
  Receive Date: 20161014
  Receipt Date: 20161117
  Transmission Date: 20170207
  Serious: Yes (Hospitalization)
  Sender: FDA-Public Use
  Company Number: IT-B.I. PHARMACEUTICALS,INC./RIDGEFIELD-2016-BI-066331

PATIENT
  Age: 81 Year
  Sex: Male
  Weight: 67 kg

DRUGS (4)
  1. LIMPIDEX [Concomitant]
     Active Substance: LANSOPRAZOLE
     Indication: PROPHYLAXIS
     Route: 048
     Dates: start: 20160120
  2. BLINDED DABIGATRAN [Suspect]
     Active Substance: DABIGATRAN ETEXILATE
     Indication: CEREBROVASCULAR ACCIDENT PROPHYLAXIS
     Route: 048
     Dates: start: 20160120, end: 20161003
  3. TORVAST [Concomitant]
     Active Substance: ATORVASTATIN
     Indication: DYSLIPIDAEMIA
     Route: 048
  4. YELLOX [Concomitant]
     Active Substance: BROMFENAC SODIUM
     Indication: PROPHYLAXIS
     Dosage: UNIT DOSE AND DAILY DOSE : 1 DROP
     Route: 065

REACTIONS (2)
  - Wrist fracture [Not Recovered/Not Resolved]
  - Chest injury [Not Recovered/Not Resolved]

NARRATIVE: CASE EVENT DATE: 20161003
